FAERS Safety Report 6907188-9 (Version None)
Quarter: 2010Q3

REPORT INFORMATION
  Report Type: 
  Country: None (occurrence: None)
  Receive Date: 20100802
  Receipt Date: 20061204
  Transmission Date: 20110219
  Serious: Yes (Other)
  Sender: FDA-Public Use
  Company Number: 2006SP007573

PATIENT
  Age: 46 Year
  Sex: Female

DRUGS (2)
  1. PEG-INTRON [Suspect]
     Indication: HEPATITIS C
     Dosage: 80 MCG;QD;IV
     Route: 042
     Dates: start: 20050926, end: 20060306
  2. REBETOL [Suspect]
     Indication: HEPATITIS C
     Dosage: 80 MG; QD; PO
     Route: 048
     Dates: start: 20050926, end: 20060306

REACTIONS (4)
  - IMMUNODEFICIENCY [None]
  - NEUROPATHY PERIPHERAL [None]
  - OSTEOPENIA [None]
  - SARCOIDOSIS [None]
